FAERS Safety Report 22345493 (Version 2)
Quarter: 2023Q2

REPORT INFORMATION
  Report Type: Spontaneous
  Country: US (occurrence: US)
  Receive Date: 20230519
  Receipt Date: 20230622
  Transmission Date: 20230722
  Serious: Yes (Other)
  Sender: FDA-Public Use
  Company Number: US-PFIZER INC-202300192104

PATIENT
  Age: 67 Year
  Sex: Female
  Weight: 39.92 kg

DRUGS (2)
  1. MEROPENEM [Suspect]
     Active Substance: MEROPENEM
     Indication: Pelvic abscess
     Dosage: 1 GRAM , IV, EVERY 8 HOURS
     Route: 042
     Dates: start: 20230411, end: 20230512
  2. OCTREOTIDE [Concomitant]
     Active Substance: OCTREOTIDE
     Indication: Short-bowel syndrome
     Dosage: INJECTION, TWICE A DAY

REACTIONS (4)
  - Urinary incontinence [Not Recovered/Not Resolved]
  - Blood urine present [Not Recovered/Not Resolved]
  - White blood cells urine positive [Not Recovered/Not Resolved]
  - Weight decreased [Not Recovered/Not Resolved]

NARRATIVE: CASE EVENT DATE: 20230412
